FAERS Safety Report 5994891-0 (Version None)
Quarter: 2008Q4

REPORT INFORMATION
  Report Type: 
  Country: None (occurrence: None)
  Receive Date: 20081210
  Receipt Date: 20081204
  Transmission Date: 20090506
  Serious: Yes (Death)
  Sender: FDA-Public Use
  Company Number: 2008JP004869

PATIENT
  Age: 77 Year
  Sex: Female
  Weight: 54 kg

DRUGS (5)
  1. PROGRAF [Suspect]
     Indication: RHEUMATOID ARTHRITIS
     Dosage: 1.5 MG, UID/QD, ORAL
     Route: 048
     Dates: start: 20060130, end: 20080926
  2. INTEBAN SP (INDOMETACIN) [Concomitant]
  3. NIZATIDINE [Concomitant]
  4. AMLODIPINE BESYLATE [Concomitant]
  5. ALFAROL (ALFACALCIDOL) [Concomitant]

REACTIONS (5)
  - BLOOD ALKALINE PHOSPHATASE INCREASED [None]
  - GASTRIC CANCER [None]
  - IMMUNOSUPPRESSION [None]
  - PLATELET COUNT DECREASED [None]
  - VOMITING [None]
